FAERS Safety Report 10673714 (Version 1)
Quarter: 2014Q4

REPORT INFORMATION
  Report Type: Spontaneous
  Country: IL (occurrence: None)
  Receive Date: 20141222
  Receipt Date: 20141222
  Transmission Date: 20150529
  Serious: Yes (Hospitalization, Other)
  Sender: FDA-Public Use
  Company Number: IL-2014VAL000652

PATIENT
  Age: 60 Year
  Sex: Female

DRUGS (4)
  1. VALPROATE (VALPROATE SODIUM) [Suspect]
     Active Substance: VALPROATE SODIUM
     Indication: PRODUCT USED FOR UNKNOWN INDICATION
     Dosage: 250 MG, BID, INCREASED GRADUALLY
  2. CARBAMAZEPINE (CARBAMAZEPINE) UNKNOWN [Suspect]
     Active Substance: CARBAMAZEPINE
     Indication: PRODUCT USED FOR UNKNOWN INDICATION
     Dosage: 100 MG, BID; WITH INSTRUCTIONS OF A 100 MG/WEEK INCREASE?
  3. LAMOTRIGINE (LAMOTRIGINE) [Suspect]
     Active Substance: LAMOTRIGINE
     Indication: PRODUCT USED FOR UNKNOWN INDICATION
     Dosage: 25 MG/DAY; WITH INSTRUCTIONS FOR DOSE INCREASE
  4. LEVETIRACETAM (LEVETIRACETAM) [Suspect]
     Active Substance: LEVETIRACETAM
     Indication: PRODUCT USED FOR UNKNOWN INDICATION

REACTIONS (9)
  - Hashimoto^s encephalopathy [None]
  - Fatigue [None]
  - Thrombocytopenia [None]
  - Refusal of treatment by patient [None]
  - Insomnia [None]
  - Dissociation [None]
  - Agitation [None]
  - Drug hypersensitivity [None]
  - Drug ineffective [None]
